FAERS Safety Report 14252169 (Version 1)
Quarter: 2017Q4

REPORT INFORMATION
  Report Type: Spontaneous
  Country: US (occurrence: US)
  Receive Date: 20171205
  Receipt Date: 20171205
  Transmission Date: 20180321
  Serious: No
  Sender: FDA-Public Use
  Company Number: US-TEVA-2017-US-827078

PATIENT
  Sex: Female

DRUGS (1)
  1. SULINDAC. [Suspect]
     Active Substance: SULINDAC
     Indication: BACK PAIN
     Dates: start: 20171018

REACTIONS (1)
  - Diarrhoea [Not Recovered/Not Resolved]

NARRATIVE: CASE EVENT DATE: 20171107
